FAERS Safety Report 8075242-7 (Version None)
Quarter: 2012Q1

REPORT INFORMATION
  Report Type: 
  Country: None (occurrence: None)
  Receive Date: 20120127
  Receipt Date: 20111031
  Transmission Date: 20120608
  Serious: Yes (Other)
  Sender: FDA-Public Use
  Company Number: CA-JNJFOC-20120106865

PATIENT
  Sex: Male
  Weight: 68.9 kg

DRUGS (4)
  1. IRON [Concomitant]
     Route: 065
  2. RABEPRAZOLE SODIUM [Concomitant]
     Route: 065
  3. IMURAN [Concomitant]
     Route: 065
  4. REMICADE [Suspect]
     Indication: CROHN'S DISEASE
     Dosage: HAS RECEIVED 58 INFUSIONS
     Route: 042

REACTIONS (2)
  - INTESTINAL POLYP [None]
  - GASTRITIS BACTERIAL [None]
